FAERS Safety Report 13850820 (Version 2)
Quarter: 2018Q2

REPORT INFORMATION
  Report Type: Spontaneous
  Country: US (occurrence: US)
  Receive Date: 20170809
  Receipt Date: 20180608
  Transmission Date: 20180711
  Serious: Yes (Hospitalization, Other)
  Sender: FDA-Public Use
  Company Number: US-GLAXOSMITHKLINE-US2017123285

PATIENT
  Age: 61 Year
  Sex: Female

DRUGS (8)
  1. FLUTICASONE PROPIONATE+SALMETEROL XINAFOATE [Suspect]
     Active Substance: FLUTICASONE PROPIONATE\SALMETEROL XINAFOATE
     Indication: CHRONIC SINUSITIS
     Dosage: UNK
     Route: 055
  2. ESOMEPRAZOLE [Concomitant]
     Active Substance: ESOMEPRAZOLE
     Indication: PRODUCT USED FOR UNKNOWN INDICATION
     Dosage: 40 MG, QD
     Route: 048
  3. VORICONAZOLE. [Interacting]
     Active Substance: VORICONAZOLE
     Dosage: 4.5 MG/KG FOR 5 MONTHS
     Route: 048
  4. VORICONAZOLE. [Interacting]
     Active Substance: VORICONAZOLE
     Indication: PNEUMONIA STAPHYLOCOCCAL
     Dosage: 2.2 MG/KG
     Route: 048
  5. FLUTICASONE PROPIONATE+SALMETEROL XINAFOATE [Interacting]
     Active Substance: FLUTICASONE PROPIONATE\SALMETEROL XINAFOATE
     Indication: CHRONIC OBSTRUCTIVE PULMONARY DISEASE
  6. MOMETASONE [Interacting]
     Active Substance: MOMETASONE
     Indication: CHRONIC OBSTRUCTIVE PULMONARY DISEASE
     Dosage: 50 ?G, QD
     Route: 045
  7. MOMETASONE [Interacting]
     Active Substance: MOMETASONE
     Indication: CHRONIC SINUSITIS
  8. TIOTROPIUM [Concomitant]
     Active Substance: TIOTROPIUM
     Dosage: 18 ?G, QD
     Route: 055

REACTIONS (3)
  - Drug interaction [Recovering/Resolving]
  - Adrenal insufficiency [Recovering/Resolving]
  - Cushing^s syndrome [Recovering/Resolving]
